FAERS Safety Report 8402327-5 (Version None)
Quarter: 2012Q2

REPORT INFORMATION
  Report Type: 
  Country: None (occurrence: None)
  Receive Date: 20120601
  Receipt Date: 20120529
  Transmission Date: 20120825
  Serious: Yes (Hospitalization)
  Sender: FDA-Public Use
  Company Number: US-ROXANE LABORATORIES, INC.-2012-RO-01315RO

PATIENT
  Age: 43 Year
  Sex: Female
  Weight: 95 kg

DRUGS (14)
  1. PREDNISONE TAB [Suspect]
     Indication: UVEITIS
     Dosage: 60 MG
     Route: 048
     Dates: start: 20110719, end: 20120115
  2. HUMIRA [Suspect]
     Route: 058
     Dates: start: 20120508
  3. AMLODIPINE [Concomitant]
     Indication: HYPERTENSION
     Dosage: 0.5 MG
     Route: 048
     Dates: start: 20110729
  4. HYDROCHLOROTHIAZIDE [Concomitant]
     Indication: HYPERTENSION
     Dosage: 12.5 MG
     Route: 048
     Dates: start: 20111103
  5. METOPROLOL SUCCINATE [Concomitant]
     Indication: HYPERTENSION
     Dosage: 100 MG
     Route: 048
     Dates: start: 20110729
  6. PREDNISONE TAB [Suspect]
     Dosage: 10 MG
     Route: 048
     Dates: start: 20120315, end: 20120411
  7. HUMIRA [Suspect]
     Indication: UVEITIS
     Route: 058
     Dates: start: 20120412, end: 20120419
  8. MYCOPHENOLATE MOFETIL [Concomitant]
     Dosage: 1 G
     Route: 048
     Dates: start: 20110701
  9. AZATHIOPRINE [Concomitant]
     Dosage: 100 MG
     Route: 048
     Dates: start: 20110801
  10. METHOTREXATE [Concomitant]
     Dosage: 15 MG
     Route: 048
     Dates: start: 20120215
  11. PREDNISOLONE ACETATE [Concomitant]
     Route: 061
     Dates: start: 20090101
  12. TRIAMCINOLONE ACETONIDE [Concomitant]
     Route: 058
     Dates: start: 20090101
  13. EPINEPHRINE [Concomitant]
     Indication: HYPERSENSITIVITY
     Route: 030
     Dates: start: 20110804
  14. PREDNISONE TAB [Suspect]
     Dosage: 15 MG
     Route: 048
     Dates: start: 20120215, end: 20120314

REACTIONS (1)
  - KIDNEY INFECTION [None]
